FAERS Safety Report 23945973 (Version 1)
Quarter: 2024Q2

REPORT INFORMATION
  Report Type: Spontaneous
  Country: US (occurrence: None)
  Receive Date: 20240605
  Receipt Date: 20240605
  Transmission Date: 20240716
  Serious: Yes (Life-Threatening, Hospitalization)
  Sender: FDA-Public Use
  Company Number: None

PATIENT
  Age: 81 Year
  Sex: Female

DRUGS (2)
  1. CEFTRIAXONE SODIUM [Suspect]
     Active Substance: CEFTRIAXONE SODIUM
     Indication: Cardiovascular disorder
     Dosage: OTHER FREQUENCY : ONE TIME;?
     Route: 040
     Dates: start: 20240603
  2. ACETAMINOPHEN [Suspect]
     Active Substance: ACETAMINOPHEN

REACTIONS (8)
  - Product supply issue [None]
  - Infusion site extravasation [None]
  - Infusion site warmth [None]
  - Abdominal pain upper [None]
  - Unresponsive to stimuli [None]
  - Respiratory arrest [None]
  - Resuscitation [None]
  - Documented hypersensitivity to administered product [None]

NARRATIVE: CASE EVENT DATE: 20240603
